FAERS Safety Report 24330613 (Version 1)
Quarter: 2024Q3

REPORT INFORMATION
  Report Type: Spontaneous
  Country: DE (occurrence: DE)
  Receive Date: 20240918
  Receipt Date: 20240918
  Transmission Date: 20241016
  Serious: Yes (Other)
  Sender: Haleon PLC
  Company Number: DE-GlaxoSmithKline-B0842772A

PATIENT
  Age: 80 Year
  Sex: Male

DRUGS (6)
  1. HYDROCORTISONE [Suspect]
     Active Substance: HYDROCORTISONE\HYDROCORTISONE ACETATE
     Indication: Kaposi^s sarcoma
     Dosage: UNK
  2. PREDNISOLONE [Suspect]
     Active Substance: PREDNISOLONE
     Indication: Myasthenia gravis
     Dosage: 5 MG, 1D (DAILY DOSE: 5 MG MILLIGRAM(S) EVERY DAY)
  3. EVEROLIMUS [Concomitant]
     Active Substance: EVEROLIMUS
     Indication: Product used for unknown indication
     Dosage: UNK, BID (0.5 MG AT MORNING, 0.25 MG AT NIGHT )
  4. EVEROLIMUS [Concomitant]
     Active Substance: EVEROLIMUS
     Dosage: 2 MG MILLIGRAM(S) EVERY DAY
  5. EVEROLIMUS [Concomitant]
     Active Substance: EVEROLIMUS
     Dosage: 0.5 MG, BID
  6. AZATHIOPRINE [Suspect]
     Active Substance: AZATHIOPRINE
     Indication: Myasthenia gravis
     Dosage: 40 MG, 1D

REACTIONS (10)
  - Renal failure [Unknown]
  - Human herpesvirus 8 infection [Unknown]
  - Antiacetylcholine receptor antibody positive [Recovering/Resolving]
  - Skin disorder [Unknown]
  - Macule [Recovering/Resolving]
  - Skin lesion [Recovering/Resolving]
  - Drug ineffective for unapproved indication [Unknown]
  - Skin mass [Recovering/Resolving]
  - Kaposi^s sarcoma [Recovered/Resolved]
  - Immunosuppression [Unknown]
